FAERS Safety Report 10161663 (Version 1)
Quarter: 2014Q2

REPORT INFORMATION
  Report Type: Spontaneous
  Country: FR (occurrence: FR)
  Receive Date: 20140509
  Receipt Date: 20140509
  Transmission Date: 20141212
  Serious: Yes (Hospitalization, Other)
  Sender: FDA-Public Use
  Company Number: FR-ROCHE-1393236

PATIENT
  Age: 38 Year
  Sex: Female

DRUGS (5)
  1. ROCEPHINE [Suspect]
     Indication: PYELONEPHRITIS
     Route: 042
     Dates: start: 20140319, end: 20140320
  2. GENTAMICIN [Suspect]
     Indication: PYELONEPHRITIS
     Route: 042
     Dates: start: 20140319, end: 20140319
  3. CIFLOX (FRANCE) [Suspect]
     Indication: PYELONEPHRITIS
     Route: 048
     Dates: start: 20140317, end: 20140319
  4. OROKEN [Suspect]
     Indication: PYELONEPHRITIS
     Route: 048
     Dates: start: 20140321, end: 20140323
  5. AUGMENTIN [Concomitant]
     Route: 065
     Dates: start: 20140123

REACTIONS (2)
  - Hepatocellular injury [Recovering/Resolving]
  - Cholestasis [Recovering/Resolving]
